FAERS Safety Report 5688934-1 (Version None)
Quarter: 2008Q1

REPORT INFORMATION
  Report Type: 
  Country: None (occurrence: None)
  Receive Date: 20080331
  Receipt Date: 20080320
  Transmission Date: 20080703
  Serious: Yes (Other)
  Sender: FDA-Public Use
  Company Number: US-BAYER-200811165BCC

PATIENT
  Sex: Male
  Weight: 109 kg

DRUGS (6)
  1. ASPIRIN [Suspect]
     Indication: PROPHYLAXIS
     Route: 048
     Dates: start: 19680101, end: 20070301
  2. METFORMIN HCL [Concomitant]
  3. GLIPIZIDE [Concomitant]
  4. JANUVIA [Concomitant]
  5. VYTORIN [Concomitant]
  6. COUMADIN [Concomitant]

REACTIONS (2)
  - ASTHENIA [None]
  - DEEP VEIN THROMBOSIS [None]
